FAERS Safety Report 7797762-2 (Version None)
Quarter: 2011Q4

REPORT INFORMATION
  Report Type: 
  Country: None (occurrence: None)
  Receive Date: 20111004
  Receipt Date: 20111004
  Transmission Date: 20120403
  Serious: Yes (Other)
  Sender: FDA-Public Use
  Company Number: None

PATIENT
  Sex: Male
  Weight: 90.7194 kg

DRUGS (1)
  1. MORPHINE SULFATE [Suspect]
     Dosage: 100MG X 1 (ORALLY)
     Route: 048
     Dates: start: 20110917

REACTIONS (2)
  - ANXIETY [None]
  - MENTAL STATUS CHANGES [None]
